FAERS Safety Report 9601742 (Version 2)
Quarter: 2013Q4

REPORT INFORMATION
  Report Type: Spontaneous
  Country: US (occurrence: US)
  Receive Date: 20131007
  Receipt Date: 20131024
  Transmission Date: 20140711
  Serious: Yes (Other)
  Sender: FDA-Public Use
  Company Number: US-AMGEN-USASP2013069760

PATIENT
  Age: 25 Year
  Sex: Female
  Weight: 72.56 kg

DRUGS (3)
  1. ENBREL [Suspect]
     Indication: RHEUMATOID ARTHRITIS
     Dosage: 25 MG, 2 TIMES/WK
     Route: 065
  2. FOLIC ACID [Concomitant]
     Dosage: UNK, QD
     Dates: start: 20101106, end: 20111201
  3. PRENATAL VITAMINS                  /02014401/ [Concomitant]
     Dosage: UNK, QD
     Dates: start: 20101106, end: 20111201

REACTIONS (2)
  - Ectopic pregnancy [Unknown]
  - Haemorrhage [Unknown]
